FAERS Safety Report 9206353 (Version 1)
Quarter: 2013Q1

REPORT INFORMATION
  Report Type: Spontaneous
  Country: US (occurrence: None)
  Receive Date: 20120709
  Receipt Date: 20120709
  Transmission Date: 20140127
  Serious: Yes (Hospitalization)
  Sender: FDA-Public Use
  Company Number: PHHY2011US63807

PATIENT
  Age: 60 Year
  Sex: Female

DRUGS (2)
  1. GLEEVEC (IMATINIB) UNKNOWN [Suspect]
     Indication: SOFT TISSUE CANCER
     Route: 048
     Dates: start: 20110519
  2. GLEEVEC (IMATINIB) UNKNOWN [Suspect]
     Indication: NEOPLASM
     Route: 048
     Dates: start: 20110519

REACTIONS (6)
  - Drug hypersensitivity [None]
  - Nausea [None]
  - Swelling [None]
  - Fluid retention [None]
  - Muscle spasms [None]
  - Diarrhoea [None]
